FAERS Safety Report 4351552-1 (Version None)
Quarter: 2004Q2

REPORT INFORMATION
  Report Type: 
  Country: None (occurrence: None)
  Receive Date: 20040503
  Receipt Date: 20040420
  Transmission Date: 20050107
  Serious: Yes (Hospitalization)
  Sender: FDA-Public Use
  Company Number: JP-MERCK-0404USA01927

PATIENT
  Age: 69 Year
  Sex: Female

DRUGS (8)
  1. CALCITRIOL [Concomitant]
     Indication: OSTEOPOROSIS
     Route: 065
     Dates: start: 19970612
  2. GEFARNATE [Concomitant]
     Indication: GASTRITIS
     Route: 065
     Dates: start: 20030819
  3. KALLIKREIN [Concomitant]
     Route: 065
     Dates: start: 20000711
  4. MISOPROSTOL [Concomitant]
     Indication: GASTRITIS
     Route: 065
     Dates: start: 20031030
  5. PREDNISOLONE [Concomitant]
     Indication: MONARTHRITIS
     Route: 065
     Dates: start: 19940307
  6. RANITIDINE HYDROCHLORIDE [Concomitant]
     Route: 065
  7. CLINORIL [Suspect]
     Indication: MONARTHRITIS
     Route: 048
     Dates: start: 20040406
  8. VITAMIN D (UNSPECIFIED) [Concomitant]
     Route: 065

REACTIONS (1)
  - RHABDOMYOLYSIS [None]
